FAERS Safety Report 8172500-2 (Version None)
Quarter: 2012Q1

REPORT INFORMATION
  Report Type: 
  Country: None (occurrence: None)
  Receive Date: 20120227
  Receipt Date: 20120227
  Transmission Date: 20120608
  Serious: Yes (Death, Hospitalization)
  Sender: FDA-Public Use
  Company Number: None

PATIENT
  Age: 53 Year
  Sex: Male
  Weight: 54.7 kg

DRUGS (2)
  1. DOXYCYCLINE [Suspect]
     Indication: CELLULITIS
     Dosage: PO
     Route: 048
  2. DOXYCYCLINE [Suspect]
     Indication: ARTHROPOD BITE
     Dosage: PO
     Route: 048

REACTIONS (5)
  - ENCEPHALOPATHY [None]
  - HYPOTENSION [None]
  - HERNIA [None]
  - JAUNDICE [None]
  - BRAIN OEDEMA [None]
